FAERS Safety Report 19005226 (Version 1)
Quarter: 2021Q1

REPORT INFORMATION
  Report Type: Spontaneous
  Country: CA (occurrence: CA)
  Receive Date: 20210312
  Receipt Date: 20210312
  Transmission Date: 20210420
  Serious: Yes (Hospitalization, Other)
  Sender: FDA-Public Use
  Company Number: CA-CIPHER-2021-CA-000539

PATIENT
  Age: 54 Year
  Sex: Female

DRUGS (19)
  1. SALBUTAMOL SULFATE [Suspect]
     Active Substance: ALBUTEROL SULFATE
     Route: 065
  2. CLONAZEPAM. [Suspect]
     Active Substance: CLONAZEPAM
     Dosage: DOSE UNKNOWN
     Route: 065
  3. ESOMEPRAZOLE. [Suspect]
     Active Substance: ESOMEPRAZOLE MAGNESIUM
     Route: 065
  4. LEVOTHYROXINE. [Suspect]
     Active Substance: LEVOTHYROXINE
     Route: 065
  5. MONTELUKAST SODIUM. [Suspect]
     Active Substance: MONTELUKAST SODIUM
     Route: 065
  6. NASONEX [Suspect]
     Active Substance: MOMETASONE FUROATE
  7. APIXABAN [Suspect]
     Active Substance: APIXABAN
     Route: 065
  8. TRAMADOL HYDROCHLORIDE. [Suspect]
     Active Substance: TRAMADOL HYDROCHLORIDE
     Indication: PRODUCT USED FOR UNKNOWN INDICATION
     Dosage: DOSE UNKNOWN
     Route: 065
  9. SODIUM BICARBONATE/SODIUM CHLORIDE [Suspect]
     Active Substance: SODIUM BICARBONATE\SODIUM CHLORIDE
     Route: 065
  10. MOMETASONE [Suspect]
     Active Substance: MOMETASONE
     Route: 065
  11. VITAMIN C [Suspect]
     Active Substance: ASCORBIC ACID
  12. LIOTHYRONINE SODIUM. [Suspect]
     Active Substance: LIOTHYRONINE SODIUM
     Route: 065
  13. VITAMIN B12 [Suspect]
     Active Substance: CYANOCOBALAMIN
  14. BUDESONIDE/FORMOTEROL FUMARATE [Suspect]
     Active Substance: BUDESONIDE\FORMOTEROL FUMARATE
     Dosage: DOSE UNKNOWN
     Route: 065
  15. PERINDOPRIL [Suspect]
     Active Substance: PERINDOPRIL
  16. VITAMIN D [Suspect]
     Active Substance: VITAMIN D NOS
     Route: 065
  17. SPIRONOLACTONE. [Suspect]
     Active Substance: SPIRONOLACTONE
     Route: 065
  18. BUPROPION. [Suspect]
     Active Substance: BUPROPION
     Dosage: DOSE UNKNOWN
     Route: 065
  19. METOPROLOL. [Suspect]
     Active Substance: METOPROLOL
     Route: 065

REACTIONS (22)
  - Headache [Unknown]
  - Loss of personal independence in daily activities [Unknown]
  - Nephrectomy [Unknown]
  - Asthma [Unknown]
  - Therapeutic product effect incomplete [Unknown]
  - Gastrooesophageal reflux disease [Unknown]
  - Wheezing [Unknown]
  - Dyspnoea [Unknown]
  - Burning sensation [Unknown]
  - Hypertension [Unknown]
  - Hypothyroidism [Unknown]
  - Rhinitis allergic [Unknown]
  - Sleep disorder due to a general medical condition [Unknown]
  - Ejection fraction [Unknown]
  - Fibromyalgia [Unknown]
  - Polycystic ovaries [Unknown]
  - Sensitisation [Unknown]
  - Sleep apnoea syndrome [Unknown]
  - Carpal tunnel syndrome [Unknown]
  - Hospitalisation [Unknown]
  - Blood test abnormal [Unknown]
  - Cardiac disorder [Unknown]
